FAERS Safety Report 5935521-3 (Version None)
Quarter: 2008Q4

REPORT INFORMATION
  Report Type: 
  Country: None (occurrence: None)
  Receive Date: 20081028
  Receipt Date: 20081022
  Transmission Date: 20090506
  Serious: Yes (Death)
  Sender: FDA-Public Use
  Company Number: 2008AL011343

PATIENT
  Age: 46 Year
  Sex: Male

DRUGS (1)
  1. DIGOXIN [Suspect]
     Indication: CARDIAC DISORDER
     Dosage: 0.125 MG DAILY PO
     Route: 048
     Dates: start: 20061101, end: 20070501

REACTIONS (1)
  - PRODUCT QUALITY ISSUE [None]
